FAERS Safety Report 7973376-6 (Version None)
Quarter: 2011Q4

REPORT INFORMATION
  Report Type: 
  Country: None (occurrence: None)
  Receive Date: 20111213
  Receipt Date: 20110820
  Transmission Date: 20120403
  Serious: No
  Sender: FDA-Public Use
  Company Number: US-AMGEN-USASP2011042612

PATIENT
  Age: 68 Year
  Sex: Male

DRUGS (8)
  1. NEUPOGEN [Suspect]
     Indication: MYELODYSPLASTIC SYNDROME
     Dates: start: 20110701
  2. METOPROLOL TARTRATE [Concomitant]
     Dosage: UNK
  3. PAXIL [Concomitant]
     Dosage: UNK
  4. ARANESP [Suspect]
     Indication: ANAEMIA
     Dosage: 300 MUG, UNK
     Dates: start: 20110701
  5. GLIMEPIRIDE [Concomitant]
     Dosage: UNK
  6. LANTUS [Concomitant]
     Dosage: UNK
  7. HALCION [Concomitant]
     Dosage: UNK
  8. ENALAPRIL MALEATE [Concomitant]
     Dosage: UNK

REACTIONS (5)
  - DIZZINESS [None]
  - NAUSEA [None]
  - EPIGASTRIC DISCOMFORT [None]
  - DIARRHOEA [None]
  - DRUG INEFFECTIVE [None]
